FAERS Safety Report 6739642-7 (Version None)
Quarter: 2010Q2

REPORT INFORMATION
  Report Type: 
  Country: None (occurrence: None)
  Receive Date: 20100525
  Receipt Date: 20100518
  Transmission Date: 20101027
  Serious: Yes (Death, Hospitalization)
  Sender: FDA-Public Use
  Company Number: VN-ROCHE-700276

PATIENT
  Age: 64 Year
  Sex: Male

DRUGS (2)
  1. PEGASYS [Suspect]
     Indication: HEPATITIS C
     Dosage: 180MCG/WEEK, 16 VIALS OF 180MCG PEGASYS IN TOTAL.
     Route: 058
     Dates: start: 20090601, end: 20100113
  2. RIBAVIRIN [Concomitant]

REACTIONS (8)
  - FATIGUE [None]
  - NEUTROPENIA [None]
  - PNEUMONIA [None]
  - PYREXIA [None]
  - RESPIRATORY FAILURE [None]
  - SEPSIS [None]
  - ULCER [None]
  - VOMITING [None]
